FAERS Safety Report 8793264 (Version 1)
Quarter: 2012Q4

REPORT INFORMATION
  Report Type: 
  Country: US (occurrence: US)
  Receive Date: 20120917
  Receipt Date: 20120917
  Transmission Date: 20130627
  Serious: Yes (Other)
  Sender: FDA-Public Use
  Company Number: US-PFIZER INC-2012228501

PATIENT
  Age: 49 Year
  Sex: Female
  Weight: 93.42 kg

DRUGS (6)
  1. LYRICA [Suspect]
     Indication: FIBROMYALGIA
     Dosage: 150 mg, 3x/day
     Route: 048
     Dates: start: 2008, end: 201208
  2. SAVELLA [Concomitant]
     Dosage: 100 mg, UNK
  3. CITALOPRAM [Concomitant]
     Dosage: 40 mg, UNK
  4. BUSPIRONE [Concomitant]
     Dosage: 20 mg, UNK
  5. AMITRIPTYLINE [Concomitant]
     Dosage: 50 mg, UNK
  6. PREDNISONE [Concomitant]
     Dosage: 120 mg, 1x/day

REACTIONS (5)
  - Hypoacusis [Not Recovered/Not Resolved]
  - Gait disturbance [Not Recovered/Not Resolved]
  - Insomnia [Not Recovered/Not Resolved]
  - Pain [Not Recovered/Not Resolved]
  - Headache [Not Recovered/Not Resolved]
